FAERS Safety Report 23910177 (Version 1)
Quarter: 2024Q2

REPORT INFORMATION
  Report Type: Spontaneous
  Country: US (occurrence: None)
  Receive Date: 20240524
  Receipt Date: 20240524
  Transmission Date: 20240716
  Serious: No
  Sender: FDA-Public Use
  Company Number: None

PATIENT
  Age: 54 Year
  Sex: Male

DRUGS (2)
  1. TACROLIMUS [Suspect]
     Active Substance: TACROLIMUS
  2. PAXLOVID [Suspect]
     Active Substance: NIRMATRELVIR\RITONAVIR

REACTIONS (14)
  - Oropharyngeal pain [None]
  - Productive cough [None]
  - Pyrexia [None]
  - Dyspnoea [None]
  - Chills [None]
  - Nausea [None]
  - COVID-19 [None]
  - Drug interaction [None]
  - Diarrhoea [None]
  - Abdominal distension [None]
  - Asthenia [None]
  - Toxicity to various agents [None]
  - Acute kidney injury [None]
  - Product prescribing error [None]
